FAERS Safety Report 9049624 (Version 1)
Quarter: 2013Q1

REPORT INFORMATION
  Report Type: Spontaneous
  Country: PL (occurrence: PL)
  Receive Date: 20130205
  Receipt Date: 20130205
  Transmission Date: 20140127
  Serious: Yes (Death)
  Sender: FDA-Public Use
  Company Number: PL-PFIZER INC-2013033380

PATIENT
  Sex: 0

DRUGS (1)
  1. DALACIN C [Suspect]
     Route: 042

REACTIONS (1)
  - Death [Fatal]
